FAERS Safety Report 25698517 (Version 2)
Quarter: 2025Q3

REPORT INFORMATION
  Report Type: Report from Study
  Country: US (occurrence: US)
  Receive Date: 20250819
  Receipt Date: 20250916
  Transmission Date: 20251021
  Serious: Yes (Hospitalization, Other)
  Sender: ALEXION PHARMACEUTICALS
  Company Number: US-AstraZeneca-CH-00931928A

PATIENT
  Sex: Female

DRUGS (1)
  1. ULTOMIRIS [Suspect]
     Active Substance: RAVULIZUMAB-CWVZ
     Indication: Paroxysmal nocturnal haemoglobinuria
     Route: 065

REACTIONS (10)
  - Near death experience [Unknown]
  - Abdominal pain upper [Unknown]
  - Anal incontinence [Unknown]
  - Chills [Unknown]
  - Diarrhoea [Unknown]
  - Nervousness [Unknown]
  - Loss of control of legs [Unknown]
  - Alopecia [Unknown]
  - Gait inability [Unknown]
  - Feeding disorder [Unknown]
